FAERS Safety Report 6019048-9 (Version None)
Quarter: 2008Q4

REPORT INFORMATION
  Report Type: 
  Country: None (occurrence: None)
  Receive Date: 20081224
  Receipt Date: 20081217
  Transmission Date: 20090506
  Serious: Yes (Other)
  Sender: FDA-Public Use
  Company Number: US-AVENTIS-200818535US

PATIENT
  Sex: Female

DRUGS (6)
  1. LANTUS [Suspect]
     Route: 058
     Dates: start: 20081001
  2. METFORMIN HCL [Concomitant]
     Dosage: DOSE: UNK
  3. GENERIC GLUCOTROL [Concomitant]
     Dosage: DOSE: UNK
  4. BENICAR [Concomitant]
     Dosage: DOSE: UNK
  5. LOPRESSOR [Concomitant]
     Dosage: DOSE: UNK
  6. HYDROCHLOROTHIAZIDE [Concomitant]
     Dosage: DOSE: UNK

REACTIONS (5)
  - FALL [None]
  - HYPERGLYCAEMIA [None]
  - HYPOGLYCAEMIA [None]
  - MEDICATION ERROR [None]
  - UPPER LIMB FRACTURE [None]
